FAERS Safety Report 25624894 (Version 2)
Quarter: 2025Q4

REPORT INFORMATION
  Report Type: Spontaneous
  Country: US (occurrence: US)
  Receive Date: 20250731
  Receipt Date: 20251005
  Transmission Date: 20260118
  Serious: No
  Sender: ABBVIE
  Company Number: US-ABBVIE-6390081

PATIENT
  Age: 56 Year
  Sex: Female

DRUGS (5)
  1. VYALEV [Suspect]
     Active Substance: FOSCARBIDOPA\FOSLEVODOPA
     Indication: Parkinson^s disease
     Dosage: BASE 0.32, LOW 0.29, HIGH 0.35, EXTRA 0.30.?CONTINUOUS 24-HOUR INFUSION?LAST ADMIN DATE: SEP 2025
     Route: 058
     Dates: start: 20250725
  2. VYALEV [Suspect]
     Active Substance: FOSCARBIDOPA\FOSLEVODOPA
     Dosage: BASE 0.29, LOW 0.27, HIGH 0.33, EXTRA DOSE 0.30?CONTINUOUS 24-HOUR INFUSION,?START DATE: BEGINNIN...
     Route: 058
     Dates: start: 202505, end: 20250724
  3. VYALEV [Suspect]
     Active Substance: FOSCARBIDOPA\FOSLEVODOPA
     Dosage: BASE RATE 0.33, HIGH RATE 0.36, LOW RATE 0.30
     Route: 058
     Dates: start: 20250927, end: 20250927
  4. VYALEV [Suspect]
     Active Substance: FOSCARBIDOPA\FOSLEVODOPA
     Dosage: BASE RATE 0.34, HIGH RATE 0.37, LOW RATE 0.31
     Route: 058
     Dates: start: 20250927, end: 20250927
  5. VYALEV [Suspect]
     Active Substance: FOSCARBIDOPA\FOSLEVODOPA
     Dosage: BASE RATE OF 0.35, HIGH RATE 0.38, LOW RATE 0.32
     Route: 058
     Dates: start: 20250928

REACTIONS (4)
  - Dry mouth [Recovering/Resolving]
  - Muscle spasms [Recovering/Resolving]
  - On and off phenomenon [Recovering/Resolving]
  - Tremor [Recovering/Resolving]

NARRATIVE: CASE EVENT DATE: 20250501
